FAERS Safety Report 5392504-2 (Version None)
Quarter: 2007Q3

REPORT INFORMATION
  Report Type: 
  Country: None (occurrence: None)
  Receive Date: 20070720
  Receipt Date: 20070718
  Transmission Date: 20080115
  Serious: Yes (Life-Threatening, Hospitalization, Other)
  Sender: FDA-Public Use
  Company Number: ES-BRISTOL-MYERS SQUIBB COMPANY-13840012

PATIENT
  Age: 72 Year
  Sex: Male
  Weight: 80 kg

DRUGS (2)
  1. SPRYCEL [Suspect]
     Indication: CHRONIC MYELOID LEUKAEMIA
     Route: 048
     Dates: start: 20060703, end: 20070604
  2. NEORECORMON [Concomitant]
     Indication: ANAEMIA

REACTIONS (6)
  - ANAPHYLACTOID REACTION [None]
  - APHONIA [None]
  - DRUG HYPERSENSITIVITY [None]
  - DRUG RESISTANCE [None]
  - LARYNGEAL OEDEMA [None]
  - RESPIRATORY ARREST [None]
